FAERS Safety Report 16465408 (Version 1)
Quarter: 2019Q2

REPORT INFORMATION
  Report Type: Other
  Country: IN (occurrence: IN)
  Receive Date: 20190621
  Receipt Date: 20190621
  Transmission Date: 20190711
  Serious: Yes (Life-Threatening, Hospitalization)
  Sender: FDA-Public Use
  Company Number: IN-NOSTRUM LABORATORIES, INC.-2069482

PATIENT
  Age: 67 Year
  Sex: Female

DRUGS (1)
  1. MORPHINE SULFATE. [Suspect]
     Active Substance: MORPHINE SULFATE
     Route: 048

REACTIONS (5)
  - Metabolic acidosis [Recovered/Resolved]
  - Tumour lysis syndrome [Recovered/Resolved]
  - Accidental overdose [Recovered/Resolved]
  - Hypoglycaemia [None]
  - Acute kidney injury [None]
